FAERS Safety Report 24132607 (Version 2)
Quarter: 2024Q3

REPORT INFORMATION
  Report Type: Spontaneous
  Country: US (occurrence: US)
  Receive Date: 20240724
  Receipt Date: 20240724
  Transmission Date: 20241016
  Serious: Yes (Life-Threatening, Hospitalization)
  Sender: ROCHE
  Company Number: US-ROCHE-10000028517

PATIENT
  Age: 31 Year
  Sex: Female

DRUGS (1)
  1. OCRELIZUMAB [Suspect]
     Active Substance: OCRELIZUMAB
     Indication: Multiple sclerosis
     Route: 065

REACTIONS (3)
  - Pelvic infection [Not Recovered/Not Resolved]
  - Abscess [Not Recovered/Not Resolved]
  - Sepsis [Not Recovered/Not Resolved]
